FAERS Safety Report 4472936-7 (Version None)
Quarter: 2004Q4

REPORT INFORMATION
  Report Type: 
  Country: None (occurrence: None)
  Receive Date: 20041013
  Receipt Date: 20041004
  Transmission Date: 20050328
  Serious: Yes (Other)
  Sender: FDA-Public Use
  Company Number: BR-MERCK-0410BRA00156

PATIENT
  Age: 65 Year
  Sex: Female

DRUGS (6)
  1. ASPIRIN [Concomitant]
     Route: 065
  2. BROMAZEPAM [Concomitant]
     Route: 065
  3. PROPATYL NITRATE [Concomitant]
     Route: 060
  4. PROPRANOLOL HYDROCHLORIDE [Concomitant]
     Route: 065
  5. VIOXX [Suspect]
     Indication: OSTEOARTHRITIS
     Route: 048
     Dates: start: 20021001, end: 20040901
  6. ZOCOR [Concomitant]
     Indication: CARDIAC FAILURE
     Route: 065

REACTIONS (3)
  - HEADACHE [None]
  - MYOCARDIAL INFARCTION [None]
  - PARAESTHESIA [None]
